FAERS Safety Report 8602679-7 (Version None)
Quarter: 2012Q3

REPORT INFORMATION
  Report Type: 
  Country: None (occurrence: None)
  Receive Date: 20120817
  Receipt Date: 20120814
  Transmission Date: 20120928
  Serious: Yes (Congenital Anomaly)
  Sender: FDA-Public Use
  Company Number: US-TEVA-354290USA

PATIENT

DRUGS (1)
  1. CLARAVIS [Suspect]
     Route: 064

REACTIONS (1)
  - HEART DISEASE CONGENITAL [None]
